FAERS Safety Report 16774892 (Version 1)
Quarter: 2019Q3

REPORT INFORMATION
  Report Type: Spontaneous
  Country: US (occurrence: US)
  Receive Date: 20190905
  Receipt Date: 20190905
  Transmission Date: 20191005
  Serious: Yes (Other)
  Sender: FDA-Public Use
  Company Number: US-009507513-1908USA011304

PATIENT
  Age: 14 Year
  Sex: Female
  Weight: 55.33 kg

DRUGS (2)
  1. NEXPLANON [Suspect]
     Active Substance: ETONOGESTREL
     Indication: MENORRHAGIA
     Dosage: 1 IMPLANT, UNK
     Route: 059
     Dates: start: 20190507, end: 20190724
  2. NEXPLANON [Suspect]
     Active Substance: ETONOGESTREL
     Indication: DYSMENORRHOEA

REACTIONS (6)
  - Ligament sprain [Recovered/Resolved]
  - Device breakage [Recovered/Resolved]
  - Product use in unapproved indication [Unknown]
  - Limb crushing injury [Recovered/Resolved]
  - Implant site pain [Recovered/Resolved]
  - Device kink [Recovered/Resolved]

NARRATIVE: CASE EVENT DATE: 2019
